FAERS Safety Report 8298804-0 (Version None)
Quarter: 2012Q1

REPORT INFORMATION
  Report Type: 
  Country: None (occurrence: None)
  Receive Date: 20120323
  Receipt Date: 20090904
  Transmission Date: 20120608
  Serious: Yes (Other)
  Sender: FDA-Public Use
  Company Number: PHEH2008US11611

PATIENT
  Age: 77 Year
  Sex: Male
  Weight: 56.2 kg

DRUGS (1)
  1. TOBI [Suspect]
     Dosage: 300 MG, BID, INHALATION
     Route: 055
     Dates: start: 20080701, end: 20081024

REACTIONS (3)
  - BRONCHOSPASM [None]
  - COUGH [None]
  - HYPERSENSITIVITY [None]
